FAERS Safety Report 8826792 (Version 1)
Quarter: 2012Q4

REPORT INFORMATION
  Report Type: 
  Country: US (occurrence: US)
  Receive Date: 20121005
  Receipt Date: 20121005
  Transmission Date: 20130627
  Serious: Yes (Other)
  Sender: FDA-Public Use
  Company Number: US-GLAXOSMITHKLINE-A0971675A

PATIENT
  Age: 45 Year
  Sex: Female
  Weight: 147.1 kg

DRUGS (10)
  1. BENLYSTA [Suspect]
     Indication: SYSTEMIC LUPUS ERYTHEMATOSUS
     Dosage: 120MG Cyclic
     Route: 042
     Dates: start: 20120220
  2. HYDROXYCHLOROQUINE [Concomitant]
  3. LYRICA [Concomitant]
  4. TRAMADOL [Concomitant]
  5. PREDNISONE [Concomitant]
     Dosage: 5MG Per day
  6. XANAX [Concomitant]
     Dosage: 1MG Per day
  7. FUROSEMIDE [Concomitant]
  8. VILAZODONE [Concomitant]
     Indication: ANXIETY
  9. HYDROCODONE [Concomitant]
     Indication: PAIN
  10. BUPROPION [Concomitant]

REACTIONS (13)
  - Systemic lupus erythematosus [Not Recovered/Not Resolved]
  - Headache [Recovered/Resolved]
  - Nausea [Recovered/Resolved]
  - Pain in extremity [Recovered/Resolved]
  - Vitamin B12 decreased [Recovered/Resolved]
  - Weight increased [Not Recovered/Not Resolved]
  - Tooth fracture [Not Recovered/Not Resolved]
  - Fatigue [Not Recovered/Not Resolved]
  - Sleep apnoea syndrome [Not Recovered/Not Resolved]
  - Orthostatic hypotension [Not Recovered/Not Resolved]
  - Inflammation [Not Recovered/Not Resolved]
  - Poor peripheral circulation [Not Recovered/Not Resolved]
  - Restless legs syndrome [Not Recovered/Not Resolved]
